FAERS Safety Report 4958157-X (Version None)
Quarter: 2006Q1

REPORT INFORMATION
  Report Type: 
  Country: None (occurrence: None)
  Receive Date: 20060324
  Receipt Date: 20060313
  Transmission Date: 20060701
  Serious: Yes (Death, Other)
  Sender: FDA-Public Use
  Company Number: 2005169944

PATIENT
  Age: 67 Year
  Sex: Male

DRUGS (5)
  1. DOXORUBICIN HCL [Suspect]
     Indication: MULTIPLE MYELOMA
     Dosage: 12 MG , INTRAVENOUS
     Route: 042
     Dates: start: 20051129, end: 20051202
  2. ONCOVIN [Suspect]
     Indication: MULTIPLE MYELOMA
     Dosage: 0.4 MG, INTRAVENOUS
     Route: 042
     Dates: start: 20051129, end: 20051202
  3. SULFAMETHOXAZOLE + TRIMETHOPRIM [Concomitant]
  4. DECADRON [Concomitant]
  5. DIFLUCAN [Concomitant]

REACTIONS (6)
  - DISSEMINATED INTRAVASCULAR COAGULATION [None]
  - HEPATIC FAILURE [None]
  - HYPERAMMONAEMIA [None]
  - NEUTROPENIC INFECTION [None]
  - PNEUMONIA [None]
  - RESPIRATORY FAILURE [None]
